FAERS Safety Report 12932270 (Version 1)
Quarter: 2016Q4

REPORT INFORMATION
  Report Type: Spontaneous
  Country: GB (occurrence: GB)
  Receive Date: 20161111
  Receipt Date: 20161111
  Transmission Date: 20170207
  Serious: Yes (Other)
  Sender: FDA-Public Use
  Company Number: GB-009507513-1611GBR001097

PATIENT
  Age: 26 Year
  Sex: Female

DRUGS (15)
  1. AMITRIPTYLINE HYDROCHLORIDE. [Concomitant]
     Active Substance: AMITRIPTYLINE HYDROCHLORIDE
     Indication: PAIN
     Dosage: 25 MG, UNK
  2. OMEPRAZOLE. [Concomitant]
     Active Substance: OMEPRAZOLE
  3. ACETAMINOPHEN. [Concomitant]
     Active Substance: ACETAMINOPHEN
     Dosage: APPLIED REGULARLY
  4. ASCORBIC ACID. [Concomitant]
     Active Substance: ASCORBIC ACID
  5. MIRTAZAPINE. [Suspect]
     Active Substance: MIRTAZAPINE
     Dosage: TITRATED BACK DOWN TO 15MG FROM 30MG.
     Route: 048
     Dates: start: 201606, end: 20160808
  6. VITAMIN D [Concomitant]
     Active Substance: CHOLECALCIFEROL
  7. MIRTAZAPINE. [Suspect]
     Active Substance: MIRTAZAPINE
     Dosage: 30 MG, UNK
     Route: 048
     Dates: end: 201606
  8. LORATADINE. [Concomitant]
     Active Substance: LORATADINE
  9. MEFENAMIC ACID. [Concomitant]
     Active Substance: MEFENAMIC ACID
  10. MIRTAZAPINE. [Suspect]
     Active Substance: MIRTAZAPINE
     Indication: DEPRESSION
     Dosage: TITRATED UP FROM 15MG TO 30MG.
     Route: 048
     Dates: start: 2015
  11. BUSCOPAN [Concomitant]
     Active Substance: BUTYLSCOPOLAMINE BROMIDE
  12. KETOPROFEN. [Concomitant]
     Active Substance: KETOPROFEN
     Dosage: APPLIED REGULARLY.
  13. DIAZEPAM. [Concomitant]
     Active Substance: DIAZEPAM
     Dosage: APPROXIMATELY 90MG APPROXIMATELY ONCE EVERY 2 MONTHS.
  14. VITAMIN B (UNSPECIFIED) [Concomitant]
     Dosage: TWICE, 8 MONTHS APART.
  15. CODEINE [Concomitant]
     Active Substance: CODEINE
     Dosage: UNK

REACTIONS (4)
  - Bacterial vaginosis [Recovered/Resolved]
  - Vulvovaginal mycotic infection [Recovered/Resolved]
  - Vaginal discharge [Unknown]
  - Vulvovaginal discomfort [Unknown]

NARRATIVE: CASE EVENT DATE: 201510
